FAERS Safety Report 15879045 (Version 4)
Quarter: 2019Q2

REPORT INFORMATION
  Report Type: Spontaneous
  Country: US (occurrence: US)
  Receive Date: 20190128
  Receipt Date: 20190627
  Transmission Date: 20190711
  Serious: No
  Sender: FDA-Public Use
  Company Number: US-PFIZER INC-2019037977

PATIENT
  Age: 47 Year
  Sex: Female

DRUGS (1)
  1. IBRANCE [Suspect]
     Active Substance: PALBOCICLIB
     Indication: BREAST CANCER FEMALE
     Dosage: 125 MG, CYCLIC,  (ONE CAPSULE A DAY X 21 DAYS)
     Dates: start: 20190118

REACTIONS (6)
  - Diarrhoea [Unknown]
  - Oral mucosal blistering [Unknown]
  - Fatigue [Unknown]
  - Pyrexia [Unknown]
  - Night sweats [Unknown]
  - Vomiting [Unknown]

NARRATIVE: CASE EVENT DATE: 2019
